FAERS Safety Report 4885449-5 (Version None)
Quarter: 2005Q4

REPORT INFORMATION
  Report Type: 
  Country: None (occurrence: None)
  Receive Date: 20051220
  Receipt Date: 20041217
  Transmission Date: 20060501
  Serious: Yes (Death)
  Sender: FDA-Public Use
  Company Number: HQWYE108120DEC04

PATIENT
  Sex: Male

DRUGS (1)
  1. EFFEXOR XR [Suspect]

REACTIONS (2)
  - COMPLETED SUICIDE [None]
  - EMOTIONAL DISORDER [None]
